FAERS Safety Report 9530006 (Version 1)
Quarter: 2013Q3

REPORT INFORMATION
  Report Type: Spontaneous
  Country: GB (occurrence: GB)
  Receive Date: 20130917
  Receipt Date: 20130917
  Transmission Date: 20140515
  Serious: Yes (Hospitalization, Other)
  Sender: FDA-Public Use
  Company Number: GB-TEVA-431172ISR

PATIENT
  Sex: Female

DRUGS (9)
  1. ERYTHROMYCIN [Suspect]
     Indication: LOWER RESPIRATORY TRACT INFECTION
     Route: 048
     Dates: start: 20120313, end: 20120319
  2. CO-AMOXICLAV [Suspect]
     Indication: LOWER RESPIRATORY TRACT INFECTION
     Dosage: INITIALLY 250/125 THREE TIMES DAILY. PATIENT RESPONDED TO 625 CO-AMOXICLAV.
     Route: 048
     Dates: start: 20120319, end: 20120320
  3. ASPIRIN [Concomitant]
     Dosage: 75 MILLIGRAM DAILY;
  4. FUROSEMIDE [Concomitant]
     Dosage: 40 MILLIGRAM DAILY; MORNING
  5. PRAVASTATIN [Concomitant]
     Dosage: 40 MILLIGRAM DAILY; NIGHT
  6. EZETIMIBE [Concomitant]
     Dosage: 10 MILLIGRAM DAILY;
  7. PERINDOPRIL [Concomitant]
     Dosage: 4 MILLIGRAM DAILY; MORNING
  8. AMLODIPINE [Concomitant]
     Dosage: 5 MILLIGRAM DAILY;
  9. BENDROFLUMETHIAZIDE [Concomitant]
     Dosage: 2.5 MILLIGRAM DAILY; MORNING

REACTIONS (4)
  - Cardiac failure [Unknown]
  - Treatment failure [Recovered/Resolved]
  - Wheezing [Unknown]
  - Rales [Unknown]
